FAERS Safety Report 9928165 (Version 1)
Quarter: 2014Q1

REPORT INFORMATION
  Report Type: Spontaneous
  Country: US (occurrence: None)
  Receive Date: 20140224
  Receipt Date: 20140224
  Transmission Date: 20141002
  Serious: Yes (Death)
  Sender: FDA-Public Use
  Company Number: NL01PV14.35174

PATIENT
  Age: 53 Year
  Sex: Male

DRUGS (4)
  1. ZOLPIDEM TABLETS [Suspect]
  2. TRAMADOL (TRAMADOL) [Suspect]
  3. MARIJUANA (CANNABIS SATIVA) (CANNABIS SATIVA) [Suspect]
  4. OPIOIDS [Suspect]

REACTIONS (2)
  - Exposure via ingestion [None]
  - Exposure via inhalation [None]
